FAERS Safety Report 15961937 (Version 2)
Quarter: 2019Q1

REPORT INFORMATION
  Report Type: Report from Study
  Country: US (occurrence: US)
  Receive Date: 20190214
  Receipt Date: 20190226
  Transmission Date: 20190417
  Serious: Yes (Hospitalization)
  Sender: FDA-Public Use
  Company Number: US-ROCHE-2261711

PATIENT
  Age: 56 Year
  Sex: Male
  Weight: 74.5 kg

DRUGS (3)
  1. RO 6870810 (BET INHIBITOR) [Suspect]
     Active Substance: RO-6870810
     Indication: DIFFUSE LARGE B-CELL LYMPHOMA
     Dosage: ON 29/JAN/2019 9:56, PATIENT RECEIVED MOST RECENT DOSE OF RO 6870810 (BET INHIBITOR) PRIOR TO AE ONS
     Route: 058
     Dates: start: 20190102
  2. VENETOCLAX. [Suspect]
     Active Substance: VENETOCLAX
     Indication: DIFFUSE LARGE B-CELL LYMPHOMA
     Dosage: ON 29/JAN/2019 9:55, PATIENT RECEIVED MOST RECENT DOSE OF VENETOCLAX PRIOR TO AE ONSET?ON 04/FEB/201
     Route: 048
     Dates: start: 20190102
  3. RITUXIMAB. [Suspect]
     Active Substance: RITUXIMAB
     Indication: DIFFUSE LARGE B-CELL LYMPHOMA
     Dosage: ON 09/JAN/2019 AT 11:02, PATIENT RECEIVED MOST RECENT DOSE OF RITUXIMAB PRIOR TO AE ONSET
     Route: 042
     Dates: start: 20190102

REACTIONS (1)
  - Post procedural haemorrhage [Recovering/Resolving]

NARRATIVE: CASE EVENT DATE: 20190204
